FAERS Safety Report 12065607 (Version 1)
Quarter: 2016Q1

REPORT INFORMATION
  Report Type: Spontaneous
  Country: FR (occurrence: FR)
  Receive Date: 20160211
  Receipt Date: 20160211
  Transmission Date: 20160526
  Serious: Yes (Hospitalization)
  Sender: FDA-Public Use
  Company Number: FR-ASTRAZENECA-2016SE12341

PATIENT
  Age: 30273 Day
  Sex: Male

DRUGS (5)
  1. CRESTOR [Suspect]
     Active Substance: ROSUVASTATIN CALCIUM
     Indication: HYPERCHOLESTEROLAEMIA
     Route: 048
     Dates: start: 2010
  2. PREVISCAN [Suspect]
     Active Substance: FLUINDIONE
     Indication: PULMONARY EMBOLISM
     Route: 048
     Dates: start: 20111025
  3. RAMIPRIL. [Suspect]
     Active Substance: RAMIPRIL
     Indication: SYSTOLIC DYSFUNCTION
     Route: 048
     Dates: start: 20150414
  4. BISOPROLOL [Suspect]
     Active Substance: BISOPROLOL
     Indication: PALPITATIONS
     Route: 048
     Dates: start: 20150414
  5. BISOPROLOL [Suspect]
     Active Substance: BISOPROLOL
     Indication: CHEST PAIN
     Route: 048
     Dates: start: 20150414

REACTIONS (1)
  - Chest pain [Not Recovered/Not Resolved]

NARRATIVE: CASE EVENT DATE: 20150621
